FAERS Safety Report 23952482 (Version 1)
Quarter: 2024Q2

REPORT INFORMATION
  Report Type: Spontaneous
  Country: US (occurrence: None)
  Receive Date: 20240607
  Receipt Date: 20240607
  Transmission Date: 20240716
  Serious: Yes (Other)
  Sender: FDA-Public Use
  Company Number: None

PATIENT
  Age: 60 Year
  Sex: Female
  Weight: 56.25 kg

DRUGS (1)
  1. QELBREE [Suspect]
     Active Substance: VILOXAZINE HYDROCHLORIDE
     Indication: Attention deficit hyperactivity disorder
     Dosage: 1 CAPSULE  AT BEDTME ORAL
     Route: 048

REACTIONS (5)
  - Nausea [None]
  - Lethargy [None]
  - Headache [None]
  - Loss of personal independence in daily activities [None]
  - Therapeutic product effect decreased [None]

NARRATIVE: CASE EVENT DATE: 20240606
